FAERS Safety Report 9805947 (Version 30)
Quarter: 2017Q1

REPORT INFORMATION
  Report Type: Report from Study
  Country: CA (occurrence: CA)
  Receive Date: 20140109
  Receipt Date: 20170331
  Transmission Date: 20170429
  Serious: Yes (Hospitalization, Other)
  Sender: FDA-Public Use
  Company Number: PHHY2012CA065810

PATIENT
  Age: 65 Year
  Sex: Male
  Weight: 88.44 kg

DRUGS (8)
  1. SANDOSTATIN [Suspect]
     Active Substance: OCTREOTIDE ACETATE
     Dosage: 200 UG, UNK
     Route: 058
     Dates: start: 20130201
  2. SANDOSTATIN [Suspect]
     Active Substance: OCTREOTIDE ACETATE
     Indication: CARCINOID TUMOUR
     Dosage: 200 UG, BID
     Route: 058
     Dates: start: 20120614
  3. SANDOSTATIN [Suspect]
     Active Substance: OCTREOTIDE ACETATE
     Dosage: 200 UG, BID (PRN)
     Route: 058
     Dates: start: 20130802
  4. SANDOSTATIN LAR DEPOT [Suspect]
     Active Substance: OCTREOTIDE ACETATE
     Indication: CARCINOID TUMOUR
     Dosage: 20 MG, EVERY 3 WEEKS
     Route: 030
     Dates: start: 20120706
  5. ATENOLOL. [Concomitant]
     Active Substance: ATENOLOL
     Indication: PRODUCT USED FOR UNKNOWN INDICATION
     Dosage: UNK
     Route: 065
  6. SANDOSTATIN LAR DEPOT [Suspect]
     Active Substance: OCTREOTIDE ACETATE
     Dosage: 60 MG, EVERY 2 WEEKS
     Route: 030
     Dates: start: 20130930
  7. SANDOSTATIN LAR DEPOT [Suspect]
     Active Substance: OCTREOTIDE ACETATE
     Dosage: 30 MG, QMO EVERY 4 WEEKS
     Route: 030
     Dates: start: 20130201
  8. SANDOSTATIN LAR DEPOT [Suspect]
     Active Substance: OCTREOTIDE ACETATE
     Dosage: 30 MG, EVERY 3 WEEKS
     Route: 030
     Dates: start: 20130301

REACTIONS (54)
  - Infection [Unknown]
  - Toothache [Not Recovered/Not Resolved]
  - Acne [Unknown]
  - Discomfort [Unknown]
  - Contusion [Unknown]
  - Incision site pain [Unknown]
  - Ear infection [Unknown]
  - Blood glucose increased [Unknown]
  - Needle issue [Unknown]
  - Syringe issue [Unknown]
  - Puncture site induration [Unknown]
  - Injection site pain [Unknown]
  - Blood pressure increased [Unknown]
  - Cholelithiasis [Unknown]
  - Chest discomfort [Recovered/Resolved]
  - Insomnia [Unknown]
  - Hot flush [Unknown]
  - Vomiting [Recovered/Resolved]
  - Diarrhoea [Recovered/Resolved]
  - Underdose [Unknown]
  - Inappropriate schedule of drug administration [Unknown]
  - Conjunctival haemorrhage [Unknown]
  - Sleep apnoea syndrome [Unknown]
  - Malaise [Unknown]
  - Feeling abnormal [Not Recovered/Not Resolved]
  - Local swelling [Unknown]
  - Dyspnoea [Recovered/Resolved]
  - Faeces discoloured [Recovered/Resolved]
  - Flushing [Not Recovered/Not Resolved]
  - Eye swelling [Unknown]
  - Eyelid oedema [Unknown]
  - Dry skin [Unknown]
  - Rash pustular [Unknown]
  - Pain [Unknown]
  - Abdominal pain [Unknown]
  - Dizziness [Unknown]
  - Seizure [Unknown]
  - Eye haemorrhage [Unknown]
  - Ocular hyperaemia [Unknown]
  - Conjunctival hyperaemia [Unknown]
  - Weight decreased [Unknown]
  - Erythema [Unknown]
  - Flatulence [Unknown]
  - Rash [Unknown]
  - Product quality issue [Unknown]
  - Anxiety [Unknown]
  - Irritability [Unknown]
  - Depression [Recovered/Resolved]
  - Skin lesion [Unknown]
  - Panic attack [Unknown]
  - Fatigue [Recovered/Resolved]
  - Body temperature increased [Unknown]
  - Headache [Unknown]
  - Injection site bruising [Unknown]

NARRATIVE: CASE EVENT DATE: 2014
